FAERS Safety Report 7091146-0 (Version None)
Quarter: 2010Q4

REPORT INFORMATION
  Report Type: 
  Country: None (occurrence: None)
  Receive Date: 20101109
  Receipt Date: 20101025
  Transmission Date: 20110411
  Serious: Yes (Hospitalization, Other)
  Sender: FDA-Public Use
  Company Number: GB-ROCHE-730882

PATIENT
  Age: 44 Year
  Sex: Female

DRUGS (1)
  1. MEFLOQUINE HYDROCHLORIDE [Suspect]
     Route: 065

REACTIONS (11)
  - CHEST DISCOMFORT [None]
  - DIARRHOEA [None]
  - DIZZINESS [None]
  - FIBRIN D DIMER INCREASED [None]
  - HYPERHIDROSIS [None]
  - LETHARGY [None]
  - LEUKOCYTOSIS [None]
  - PALPITATIONS [None]
  - POSTURAL ORTHOSTATIC TACHYCARDIA SYNDROME [None]
  - RESPIRATORY ALKALOSIS [None]
  - SINUS TACHYCARDIA [None]
